FAERS Safety Report 7940185-3 (Version None)
Quarter: 2011Q4

REPORT INFORMATION
  Report Type: 
  Country: None (occurrence: None)
  Receive Date: 20111125
  Receipt Date: 20111116
  Transmission Date: 20120403
  Serious: Yes (Other)
  Sender: FDA-Public Use
  Company Number: PHHY2011GB100612

PATIENT
  Age: 48 Year
  Sex: Male

DRUGS (2)
  1. OXALIPLATIN [Suspect]
     Indication: GASTROINTESTINAL CARCINOMA
     Route: 065
  2. CAPECITABINE [Suspect]
     Indication: GASTROINTESTINAL CARCINOMA
     Route: 065

REACTIONS (3)
  - CARCINOEMBRYONIC ANTIGEN INCREASED [None]
  - NEOPLASM MALIGNANT [None]
  - HAND FRACTURE [None]
